FAERS Safety Report 18851183 (Version 1)
Quarter: 2021Q1

REPORT INFORMATION
  Report Type: Spontaneous
  Country: US (occurrence: US)
  Receive Date: 20210204
  Receipt Date: 20210204
  Transmission Date: 20210420
  Serious: Yes (Death)
  Sender: FDA-Public Use
  Company Number: None

PATIENT
  Sex: Male

DRUGS (11)
  1. STIOLTO RESPIMAT [Suspect]
     Active Substance: OLODATEROL HYDROCHLORIDE\TIOTROPIUM BROMIDE MONOHYDRATE
  2. MEXILETINE [Suspect]
     Active Substance: MEXILETINE
  3. TADALAFIL 20MG [Suspect]
     Active Substance: TADALAFIL
     Indication: PULMONARY ARTERIAL HYPERTENSION
     Route: 048
     Dates: start: 19280624
  4. BRIMONIDINE [Suspect]
     Active Substance: BRIMONIDINE TARTRATE
  5. ALLOPURINOL. [Suspect]
     Active Substance: ALLOPURINOL
  6. ELIQUIS [Suspect]
     Active Substance: APIXABAN
  7. METOPROLOL TARTRATE. [Suspect]
     Active Substance: METOPROLOL TARTRATE
  8. METOLAZONE. [Suspect]
     Active Substance: METOLAZONE
  9. PANTOPRAZOLE [Suspect]
     Active Substance: PANTOPRAZOLE
  10. AMIODARONE [Suspect]
     Active Substance: AMIODARONE
  11. VITAMIN D [Suspect]
     Active Substance: VITAMIN D NOS

REACTIONS (1)
  - Death [None]
